FAERS Safety Report 11598119 (Version 1)
Quarter: 2015Q4

REPORT INFORMATION
  Report Type: Spontaneous
  Country: US (occurrence: US)
  Receive Date: 20151006
  Receipt Date: 20151006
  Transmission Date: 20160304
  Serious: No
  Sender: FDA-Public Use
  Company Number: US-ROCHE-1608203

PATIENT
  Sex: Male

DRUGS (15)
  1. CRANBERRY. [Concomitant]
     Active Substance: CRANBERRY
  2. SAW PALMETTO [Concomitant]
     Active Substance: SAW PALMETTO
  3. SALMON OIL [Concomitant]
     Active Substance: FISH OIL
  4. ERIVEDGE [Suspect]
     Active Substance: VISMODEGIB
     Indication: BASAL CELL CARCINOMA
     Route: 048
     Dates: start: 20141020
  5. SIMVASTATIN. [Concomitant]
     Active Substance: SIMVASTATIN
  6. ZINC ASPARTATE [Concomitant]
  7. LYCOPENE [Concomitant]
     Active Substance: LYCOPENE
  8. ERGOCALCIFEROL. [Concomitant]
     Active Substance: ERGOCALCIFEROL
  9. HYDROCORTISONE. [Concomitant]
     Active Substance: HYDROCORTISONE
  10. AQUAPHOR (UNITED STATES) [Concomitant]
  11. LUTEIN [Concomitant]
     Active Substance: LUTEIN
  12. BRIMONIDINE TARTRATE. [Concomitant]
     Active Substance: BRIMONIDINE TARTRATE
  13. CINNAMON. [Concomitant]
     Active Substance: CINNAMON
  14. SULFACETAMIDE SODIUM. [Concomitant]
     Active Substance: SULFACETAMIDE SODIUM
  15. GLUCOSAMINE CHONDROITIN COMPLEX [Concomitant]
     Active Substance: CHONDROITIN SULFATE (BOVINE)\GLUCOSAMINE HYDROCHLORIDE

REACTIONS (1)
  - Ageusia [Unknown]
